FAERS Safety Report 18584652 (Version 2)
Quarter: 2021Q1

REPORT INFORMATION
  Report Type: Report from Study
  Country: CA (occurrence: CA)
  Receive Date: 20201207
  Receipt Date: 20210105
  Transmission Date: 20210419
  Serious: Yes (Other)
  Sender: FDA-Public Use
  Company Number: CA-JNJFOC-20201201731

PATIENT
  Age: 67 Year
  Sex: Female
  Weight: 64 kg

DRUGS (1)
  1. REMICADE [Suspect]
     Active Substance: INFLIXIMAB
     Indication: COLITIS ULCERATIVE
     Dosage: ON 10?AUG?2011, PATIENT RECEIVED INFUSION
     Route: 042
     Dates: start: 20110309, end: 20201113

REACTIONS (2)
  - Fibroma [Unknown]
  - Coronavirus test positive [Unknown]

NARRATIVE: CASE EVENT DATE: 20201128
